FAERS Safety Report 8438954-9 (Version None)
Quarter: 2012Q2

REPORT INFORMATION
  Report Type: 
  Country: None (occurrence: None)
  Receive Date: 20120615
  Receipt Date: 20120613
  Transmission Date: 20120825
  Serious: No
  Sender: FDA-Public Use
  Company Number: US-PFIZER INC-2012143507

PATIENT
  Sex: Female
  Weight: 65.76 kg

DRUGS (6)
  1. CELECOXIB [Suspect]
     Indication: MUSCULOSKELETAL PAIN
     Dosage: 200 MG, DAILY
     Dates: start: 20120528
  2. ASPIRIN [Concomitant]
     Indication: CARDIAC DISORDER
     Dosage: 81 MG,DAILY
  3. CALCIUM WITH VITAMIN D [Concomitant]
     Dosage: 600/400 MG IU
  4. SIMVASTATIN [Concomitant]
     Indication: BLOOD CHOLESTEROL INCREASED
     Dosage: 20 MG,DAILY
  5. METFORMIN [Concomitant]
     Indication: DIABETES MELLITUS
     Dosage: 1000 MG, 2X/DAY
  6. LORATADINE [Concomitant]
     Indication: HYPERSENSITIVITY
     Dosage: 10 MG,DAILY

REACTIONS (3)
  - OEDEMA PERIPHERAL [None]
  - DIZZINESS [None]
  - ARTHRALGIA [None]
